FAERS Safety Report 26190706 (Version 1)
Quarter: 2025Q4

REPORT INFORMATION
  Report Type: Report from Study
  Country: EU (occurrence: EU)
  Receive Date: 20251223
  Receipt Date: 20251223
  Transmission Date: 20260119
  Serious: Yes (Hospitalization, Other)
  Sender: RANBAXY
  Company Number: EU-SUN PHARMACEUTICAL INDUSTRIES LTD-2025R1-498197

PATIENT
  Age: 33 Year
  Sex: Male

DRUGS (3)
  1. GABAPENTIN [Suspect]
     Active Substance: GABAPENTIN
     Indication: Drug use disorder
     Dosage: 3600 MILLIGRAM, PER DAY
     Route: 065
  2. GABAPENTIN [Suspect]
     Active Substance: GABAPENTIN
     Indication: Drug detoxification
  3. PREGABALIN [Suspect]
     Active Substance: PREGABALIN
     Indication: Pain
     Dosage: 8400 MILLIGRAM, PER DAY
     Route: 065

REACTIONS (7)
  - Drug ineffective [Unknown]
  - Withdrawal syndrome [Unknown]
  - Drug use disorder [Unknown]
  - Drug dependence [Unknown]
  - Anxiety [Unknown]
  - Intentional overdose [Unknown]
  - Intentional product use issue [Unknown]
